FAERS Safety Report 6010806-3 (Version None)
Quarter: 2008Q4

REPORT INFORMATION
  Report Type: 
  Country: None (occurrence: None)
  Receive Date: 20081218
  Receipt Date: 20081211
  Transmission Date: 20090506
  Serious: Yes (Hospitalization)
  Sender: FDA-Public Use
  Company Number: PHHY2008JP32037

PATIENT
  Age: 75 Year
  Sex: Male
  Weight: 75 kg

DRUGS (8)
  1. DIOVAN [Suspect]
     Indication: HYPERTENSION
     Dosage: 40 MG, QD
     Route: 048
     Dates: start: 20081120, end: 20081125
  2. DIOVAN [Suspect]
     Dosage: 80 MG
     Route: 048
     Dates: start: 20081126, end: 20081130
  3. DIOVAN [Suspect]
     Dosage: 160 MG
     Route: 048
     Dates: start: 20081201, end: 20081203
  4. NORVASC [Concomitant]
     Indication: HYPERTENSION
     Dosage: UNK
     Route: 048
     Dates: start: 20081120
  5. NITRODERM [Concomitant]
  6. LASIX [Concomitant]
  7. PREDONINE [Concomitant]
  8. ZANTAC [Concomitant]

REACTIONS (1)
  - DRUG ERUPTION [None]
